FAERS Safety Report 6245194-0 (Version None)
Quarter: 2009Q2

REPORT INFORMATION
  Report Type: 
  Country: None (occurrence: None)
  Receive Date: 20090625
  Receipt Date: 20090616
  Transmission Date: 20091009
  Serious: Yes (Hospitalization, Other)
  Sender: FDA-Public Use
  Company Number: PHHO2005CA02406

PATIENT
  Sex: Male

DRUGS (17)
  1. SANDOSTATIN LAR [Suspect]
     Indication: CARCINOID TUMOUR
     Dosage: 20 MG, EVERY 4 WEEKS
     Dates: start: 20050202
  2. SANDOSTATIN LAR [Suspect]
     Dosage: 30 MG, EVERY 4 WEEKS
  3. SANDOSTATIN LAR [Suspect]
     Dosage: 50 MG, ONCE A MONTH
  4. SANDOSTATIN LAR [Suspect]
     Dosage: 40 MG EVERY 4 WEEKS
     Route: 030
     Dates: start: 20050202
  5. SANDOSTATIN LAR [Suspect]
     Dosage: 50 MG, EVERY 4 WEEKS
     Route: 030
     Dates: start: 20050202
  6. PRILOSEC [Concomitant]
     Dosage: 20 MG, BID
     Route: 048
  7. RISPERDAL [Concomitant]
     Dosage: 0.25 MG, QHS
     Route: 048
  8. LIPITOR [Concomitant]
     Dosage: 10 MG, QD
     Route: 048
  9. METOPROLOL SUCCINATE [Concomitant]
     Dosage: 50 MG, QD
     Route: 048
  10. NITROGLYCERIN [Concomitant]
  11. TIAZAC [Concomitant]
     Dosage: 120 MG, QD
     Route: 048
  12. INDAPAMIDE HEMIHYDRATE [Concomitant]
     Dosage: 2.5 MG, QD
  13. INDAPAMIDE HEMIHYDRATE [Concomitant]
     Dosage: 1.25 MG AM
     Route: 048
  14. LASIX [Concomitant]
     Dosage: 40 MG, BID
  15. FENTANYL [Concomitant]
  16. INDAPAMIDE [Concomitant]
  17. REMERON [Concomitant]

REACTIONS (22)
  - ABDOMINAL PAIN LOWER [None]
  - ABDOMINAL PAIN UPPER [None]
  - ASTHENIA [None]
  - BRADYCARDIA [None]
  - CARDIAC PACEMAKER INSERTION [None]
  - CHOLECYSTECTOMY [None]
  - CONFUSIONAL STATE [None]
  - COUGH [None]
  - DIARRHOEA [None]
  - DYSPNOEA [None]
  - FEELING HOT [None]
  - GALLBLADDER PAIN [None]
  - HEADACHE [None]
  - HYPOTENSION [None]
  - INSOMNIA [None]
  - LOSS OF CONSCIOUSNESS [None]
  - NAUSEA [None]
  - PLEURAL EFFUSION [None]
  - SPUTUM DISCOLOURED [None]
  - VOMITING [None]
  - VOMITING PROJECTILE [None]
  - WEIGHT DECREASED [None]
